FAERS Safety Report 15316318 (Version 1)
Quarter: 2018Q3

REPORT INFORMATION
  Report Type: Spontaneous
  Country: US (occurrence: US)
  Receive Date: 20180816
  Receipt Date: 20180816
  Transmission Date: 20181010
  Serious: Yes (Hospitalization)
  Sender: FDA-Public Use
  Company Number: None

PATIENT
  Age: 32 Year
  Sex: Male

DRUGS (20)
  1. ENOXAPARIN [Suspect]
     Active Substance: ENOXAPARIN
     Indication: EMBOLISM VENOUS
     Route: 058
     Dates: start: 20180409
  2. CYCLOBENZAPR [Concomitant]
     Active Substance: CYCLOBENZAPRINE
  3. DIPHENHYDRAM [Concomitant]
  4. CLONAZEPAM. [Concomitant]
     Active Substance: CLONAZEPAM
  5. MIRALAX [Concomitant]
     Active Substance: POLYETHYLENE GLYCOL 3350
  6. GABAPENTIN. [Concomitant]
     Active Substance: GABAPENTIN
  7. ICY HOT [Concomitant]
     Active Substance: MENTHOL\METHYL SALICYLATE
  8. PROPRANOLOL [Concomitant]
     Active Substance: PROPRANOLOL HYDROCHLORIDE
  9. LIDOCAINE. [Concomitant]
     Active Substance: LIDOCAINE
  10. MG?PLUS [Concomitant]
  11. TAMSULOSIN [Concomitant]
     Active Substance: TAMSULOSIN
  12. ENOXAPARIN [Suspect]
     Active Substance: ENOXAPARIN
     Indication: DEEP VEIN THROMBOSIS
     Route: 058
     Dates: start: 20180409
  13. ACETAMIN [Concomitant]
     Active Substance: ACETAMINOPHEN
  14. CETRIZINE [Concomitant]
     Active Substance: CETIRIZINE HYDROCHLORIDE
  15. FUROSEMIDE. [Concomitant]
     Active Substance: FUROSEMIDE
  16. HYDROMORPHON [Concomitant]
     Active Substance: HYDROMORPHONE
  17. NORTRIPTYLIN [Concomitant]
     Active Substance: NORTRIPTYLINE
  18. IBUPROFEN. [Concomitant]
     Active Substance: IBUPROFEN
  19. MULTIVITAMIN [Concomitant]
     Active Substance: VITAMINS
  20. METHADONE [Concomitant]
     Active Substance: METHADONE HYDROCHLORIDE

REACTIONS (2)
  - Neoplasm malignant [None]
  - Terminal state [None]

NARRATIVE: CASE EVENT DATE: 20180801
